FAERS Safety Report 7631143-7 (Version None)
Quarter: 2011Q3

REPORT INFORMATION
  Report Type: 
  Country: None (occurrence: None)
  Receive Date: 20110725
  Receipt Date: 20110715
  Transmission Date: 20111222
  Serious: No
  Sender: FDA-Public Use
  Company Number: US-JNJFOC-20110707351

PATIENT
  Sex: Female
  Weight: 64.86 kg

DRUGS (2)
  1. UNKNOWN MEDICATION [Concomitant]
     Indication: BLOOD PRESSURE
     Route: 065
  2. DURAGESIC-100 [Suspect]
     Indication: PROCEDURAL PAIN
     Route: 062
     Dates: start: 20110708, end: 20110709

REACTIONS (6)
  - VOMITING [None]
  - FEELING ABNORMAL [None]
  - NAUSEA [None]
  - OFF LABEL USE [None]
  - DRUG PRESCRIBING ERROR [None]
  - MALAISE [None]
